FAERS Safety Report 6636026-7 (Version None)
Quarter: 2010Q1

REPORT INFORMATION
  Report Type: 
  Country: None (occurrence: None)
  Receive Date: 20100311
  Receipt Date: 20100302
  Transmission Date: 20100710
  Serious: Yes (Hospitalization)
  Sender: FDA-Public Use
  Company Number: WAES 1003USA00726

PATIENT
  Age: 25 Year
  Sex: Male
  Weight: 63.05 kg

DRUGS (4)
  1. ISENTRESS [Suspect]
     Indication: HIV INFECTION
     Dosage: 400MG/BID/PO
     Route: 048
     Dates: start: 20100216
  2. EMTRICITABINE AND TENOFOVIR DISOPROXIL FUMARATE [Suspect]
     Indication: HIV INFECTION
     Dosage: 1 TAB/DAILY/PO
     Route: 048
     Dates: start: 20100216
  3. ZOLOFT [Concomitant]
  4. PROMETHAZINE [Concomitant]

REACTIONS (13)
  - ASTHENIA [None]
  - ASTHMA [None]
  - BACK PAIN [None]
  - CHILLS [None]
  - CONSTIPATION [None]
  - DEHYDRATION [None]
  - FATIGUE [None]
  - NAUSEA [None]
  - NECK PAIN [None]
  - NEURALGIA [None]
  - POST HERPETIC NEURALGIA [None]
  - VOMITING [None]
  - WEIGHT DECREASED [None]
